FAERS Safety Report 6662903-7 (Version None)
Quarter: 2010Q1

REPORT INFORMATION
  Report Type: 
  Country: None (occurrence: None)
  Receive Date: 20100323
  Receipt Date: 20091216
  Transmission Date: 20100710
  Serious: No
  Sender: FDA-Public Use
  Company Number: 2009US000052

PATIENT
  Age: 54 Year
  Sex: Female

DRUGS (2)
  1. ENTEREG [Suspect]
     Indication: POSTOPERATIVE ILEUS
     Dosage: 12 MG; BID; PO
     Route: 048
     Dates: start: 20091124, end: 20091124
  2. TOPROL-XL [Concomitant]

REACTIONS (3)
  - ABDOMINAL DISCOMFORT [None]
  - CLOSTRIDIUM DIFFICILE COLITIS [None]
  - HYPERSENSITIVITY [None]
